FAERS Safety Report 12546872 (Version 1)
Quarter: 2016Q3

REPORT INFORMATION
  Report Type: Report from Study
  Country: CO (occurrence: CO)
  Receive Date: 20160711
  Receipt Date: 20160711
  Transmission Date: 20161109
  Serious: Yes (Other)
  Sender: FDA-Public Use
  Company Number: CO-ABBVIE-15K-036-1513665-00

PATIENT
  Age: 33 Year
  Sex: Female
  Weight: 51 kg

DRUGS (1)
  1. HUMIRA [Suspect]
     Active Substance: ADALIMUMAB
     Indication: PSORIASIS
     Route: 058
     Dates: start: 20150814, end: 20151002

REACTIONS (6)
  - Exposure during pregnancy [Unknown]
  - Nausea [Unknown]
  - Dizziness [Unknown]
  - Caesarean section [Recovering/Resolving]
  - Live birth [Unknown]
  - Fatigue [Unknown]

NARRATIVE: CASE EVENT DATE: 2015
